FAERS Safety Report 23049604 (Version 1)
Quarter: 2023Q4

REPORT INFORMATION
  Report Type: Spontaneous
  Country: None (occurrence: CA)
  Receive Date: 20231010
  Receipt Date: 20231010
  Transmission Date: 20240109
  Serious: Yes (Life-Threatening, Hospitalization)
  Sender: FDA-Public Use
  Company Number: CA-B.Braun Medical Inc.-2146889

PATIENT
  Age: 47 Year
  Sex: Male
  Weight: 74 kg

DRUGS (31)
  1. HEPARIN SODIUM IN DEXTROSE [Suspect]
     Active Substance: HEPARIN SODIUM
     Indication: Thrombosis prophylaxis
  2. Acteminophen [Concomitant]
  3. CASPOFUNGIN [Concomitant]
     Active Substance: CASPOFUNGIN
  4. CEFTAZIDIME [Concomitant]
     Active Substance: CEFTAZIDIME
  5. Dexemedetomide [Concomitant]
  6. DIMENHYDRINATE [Concomitant]
     Active Substance: DIMENHYDRINATE
  7. EPINEPHRINE [Concomitant]
     Active Substance: EPINEPHRINE
  8. FENTANYL [Concomitant]
     Active Substance: FENTANYL
  9. FILGRASTIM [Concomitant]
     Active Substance: FILGRASTIM
  10. FUROSEMIDE [Concomitant]
     Active Substance: FUROSEMIDE
  11. HYDROCORTISONE [Concomitant]
     Active Substance: HYDROCORTISONE
  12. HYDROMORPHONE [Concomitant]
     Active Substance: HYDROMORPHONE
  13. INSULIN NOS [Concomitant]
     Active Substance: INSULIN NOS
  14. K-lyte [Concomitant]
  15. METOCLOPRAMIDE [Concomitant]
     Active Substance: METOCLOPRAMIDE
  16. Midazolam ?injection [Concomitant]
  17. Mitomycin for injection [Concomitant]
  18. MORPHINE [Concomitant]
     Active Substance: MORPHINE
  19. NALBUPHINE HYDROCHLORIDE [Concomitant]
     Active Substance: NALBUPHINE HYDROCHLORIDE
  20. NALOXONE [Concomitant]
     Active Substance: NALOXONE
  21. NOREPINEPHRINE [Concomitant]
     Active Substance: NOREPINEPHRINE
  22. NYSTATIN [Concomitant]
     Active Substance: NYSTATIN
  23. ONDANSETRON [Concomitant]
     Active Substance: ONDANSETRON
  24. PIPERACILLIN SODIUM\TAZOBACTAM SODIUM [Concomitant]
     Active Substance: PIPERACILLIN SODIUM\TAZOBACTAM SODIUM
  25. PROPOFOL [Concomitant]
     Active Substance: PROPOFOL
  26. Quetianpine [Concomitant]
  27. ROCURONIUM [Concomitant]
     Active Substance: ROCURONIUM BROMIDE
  28. TOBRAMYCIN [Concomitant]
     Active Substance: TOBRAMYCIN
  29. VANCOMYCIN [Concomitant]
     Active Substance: VANCOMYCIN
  30. Vasopressin inj ?usp [Concomitant]
  31. VITAMIN K [Concomitant]
     Active Substance: PHYTONADIONE

REACTIONS (2)
  - Haemodynamic instability [None]
  - Intra-abdominal haemorrhage [None]
